FAERS Safety Report 4789676-7 (Version None)
Quarter: 2005Q4

REPORT INFORMATION
  Report Type: 
  Country: None (occurrence: None)
  Receive Date: 20051006
  Receipt Date: 20041223
  Transmission Date: 20060501
  Serious: Yes (Disabling)
  Sender: FDA-Public Use
  Company Number: 2004AP06470

PATIENT
  Age: 19275 Day
  Sex: Male
  Weight: 50 kg

DRUGS (3)
  1. IRESSA [Suspect]
     Indication: SQUAMOUS CELL CARCINOMA
     Route: 048
     Dates: start: 20031208, end: 20041212
  2. CISPLATIN [Suspect]
     Indication: SQUAMOUS CELL CARCINOMA
     Route: 042
     Dates: start: 20031209, end: 20041229
  3. RADIOTHERAPY [Suspect]
     Indication: SQUAMOUS CELL CARCINOMA

REACTIONS (3)
  - NECROSIS [None]
  - STOMATITIS NECROTISING [None]
  - TONGUE DISORDER [None]
